FAERS Safety Report 6648279-X (Version None)
Quarter: 2010Q1

REPORT INFORMATION
  Report Type: 
  Country: None (occurrence: None)
  Receive Date: 20100324
  Receipt Date: 20100204
  Transmission Date: 20100710
  Serious: Yes (Death)
  Sender: FDA-Public Use
  Company Number: US-ROCHE-677433

PATIENT
  Sex: Female
  Weight: 114.8 kg

DRUGS (5)
  1. AVASTIN [Suspect]
     Indication: METASTATIC RENAL CELL CARCINOMA
     Route: 042
     Dates: start: 20090827
  2. AVASTIN [Suspect]
     Route: 042
     Dates: start: 20090910
  3. AVASTIN [Suspect]
     Route: 042
     Dates: start: 20090924
  4. AVASTIN [Suspect]
     Dosage: 4 COURSES OF AVASTIN
     Route: 042
     Dates: start: 20091008
  5. AVASTIN [Suspect]
     Route: 042
     Dates: start: 20091202

REACTIONS (2)
  - DISEASE PROGRESSION [None]
  - WEIGHT DECREASED [None]
